FAERS Safety Report 4493690-9 (Version None)
Quarter: 2004Q4

REPORT INFORMATION
  Report Type: 
  Country: None (occurrence: None)
  Receive Date: 20041102
  Receipt Date: 20041022
  Transmission Date: 20050328
  Serious: Yes (Hospitalization, Other)
  Sender: FDA-Public Use
  Company Number: 2004S1000073

PATIENT
  Age: 76 Year
  Sex: Male
  Weight: 74.8435 kg

DRUGS (1)
  1. OXANDRIN [Suspect]
     Indication: DECREASED APPETITE
     Dosage: 10 MG;BID;PO
     Route: 048
     Dates: start: 20040724, end: 20041007

REACTIONS (4)
  - BLOOD POTASSIUM DECREASED [None]
  - COLON CANCER [None]
  - GASTRIC CANCER [None]
  - GASTRIC HAEMORRHAGE [None]
